FAERS Safety Report 25080176 (Version 1)
Quarter: 2025Q1

REPORT INFORMATION
  Report Type: Report from Study
  Country: US (occurrence: US)
  Receive Date: 20250314
  Receipt Date: 20250314
  Transmission Date: 20250409
  Serious: Yes (Disabling, Other)
  Sender: GILEAD
  Company Number: US-GILEAD-2025-0707264

PATIENT
  Age: 18 Year
  Sex: Male

DRUGS (10)
  1. AZTREONAM LYSINE [Suspect]
     Active Substance: AZTREONAM LYSINE
     Indication: Cystic fibrosis
     Dosage: 1 VIAL INHALED VIA ALTERA NEBULIZER THREE TIMES DAILY FOR 28 DAYS ON AND 28 DAYS OFF
     Route: 055
     Dates: start: 20220120
  2. BUDESONIDE [Concomitant]
     Active Substance: BUDESONIDE
  3. CLOBAZAM [Concomitant]
     Active Substance: CLOBAZAM
  4. FERROUS SULFATE [Concomitant]
     Active Substance: FERROUS SULFATE
  5. IPRATROPIUM [Concomitant]
     Active Substance: IPRATROPIUM
  6. LINZESS [Concomitant]
     Active Substance: LINACLOTIDE
  7. LORATADINE [Concomitant]
     Active Substance: LORATADINE
  8. PREGABALIN [Concomitant]
     Active Substance: PREGABALIN
  9. REFRESH LIQUIGEL [Concomitant]
     Active Substance: CARBOXYMETHYLCELLULOSE SODIUM
  10. SENNA [Concomitant]
     Active Substance: SENNOSIDES

REACTIONS (2)
  - Loss of personal independence in daily activities [Unknown]
  - Dependence on respirator [Unknown]
